FAERS Safety Report 13997837 (Version 1)
Quarter: 2017Q3

REPORT INFORMATION
  Report Type: Spontaneous
  Country: US (occurrence: None)
  Receive Date: 20170921
  Receipt Date: 20170921
  Transmission Date: 20171128
  Serious: Yes (Hospitalization)
  Sender: FDA-Public Use
  Company Number: None

PATIENT
  Age: 91 Year
  Sex: Female

DRUGS (9)
  1. VITAMIN D3 [Concomitant]
     Active Substance: CHOLECALCIFEROL
  2. KLOR-CON [Concomitant]
     Active Substance: POTASSIUM CHLORIDE
  3. CALCIUM/D [Concomitant]
  4. ENBREL [Suspect]
     Active Substance: ETANERCEPT
     Indication: RHEUMATOID ARTHRITIS
     Route: 058
     Dates: start: 20141114
  5. ATORVASTATIN [Concomitant]
     Active Substance: ATORVASTATIN
  6. PREDNISONE. [Concomitant]
     Active Substance: PREDNISONE
  7. ASPIRIN. [Concomitant]
     Active Substance: ASPIRIN
  8. FUROSEMIDE. [Concomitant]
     Active Substance: FUROSEMIDE
  9. FOLIC ACID. [Concomitant]
     Active Substance: FOLIC ACID

REACTIONS (2)
  - Rib fracture [None]
  - Fall [None]
